FAERS Safety Report 6655206-8 (Version None)
Quarter: 2010Q1

REPORT INFORMATION
  Report Type: 
  Country: None (occurrence: None)
  Receive Date: 20100324
  Receipt Date: 20100315
  Transmission Date: 20100710
  Serious: Yes (Other)
  Sender: FDA-Public Use
  Company Number: 2010SP015826

PATIENT

DRUGS (1)
  1. INTRON A [Suspect]
     Indication: DRUG USE FOR UNKNOWN INDICATION
     Dosage: 0.2 ML

REACTIONS (8)
  - BLOOD URINE PRESENT [None]
  - CARDIAC DISORDER [None]
  - DRY EYE [None]
  - NASAL DISORDER [None]
  - ORAL DISORDER [None]
  - PRODUCT QUALITY ISSUE [None]
  - RESPIRATORY DISORDER [None]
  - SKIN EXFOLIATION [None]
